FAERS Safety Report 10271743 (Version 1)
Quarter: 2014Q3

REPORT INFORMATION
  Report Type: Spontaneous
  Country: US (occurrence: US)
  Receive Date: 20140701
  Receipt Date: 20140701
  Transmission Date: 20150326
  Serious: No
  Sender: FDA-Public Use
  Company Number: US-SA-2014SA069601

PATIENT
  Age: 21 Year
  Sex: Female

DRUGS (2)
  1. CEREZYME [Suspect]
     Active Substance: IMIGLUCERASE
     Indication: GAUCHER^S DISEASE
     Dosage: CHILDHOOD DOSE DOSE:1600 UNIT(S)
     Route: 042
     Dates: start: 2003, end: 2013
  2. CEREZYME [Suspect]
     Active Substance: IMIGLUCERASE
     Indication: GAUCHER^S DISEASE
     Dosage: DOSE:4000 UNIT(S)
     Route: 042
     Dates: start: 2013

REACTIONS (1)
  - Dermatitis allergic [Not Recovered/Not Resolved]

NARRATIVE: CASE EVENT DATE: 2013
